FAERS Safety Report 18000084 (Version 2)
Quarter: 2020Q3

REPORT INFORMATION
  Report Type: Spontaneous
  Country: US (occurrence: US)
  Receive Date: 20200709
  Receipt Date: 20200716
  Transmission Date: 20201103
  Serious: No
  Sender: FDA-Public Use
  Company Number: US-GW PHARMA-202007USGW02401

PATIENT

DRUGS (3)
  1. EPIDIOLEX [Suspect]
     Active Substance: CANNABIDIOL
     Indication: PARTIAL SEIZURES
     Dosage: 19.58 MG/KG/DAY, 760 MILLIGRAM, BID
     Route: 048
     Dates: start: 20200509, end: 2020
  2. EPIDIOLEX [Suspect]
     Active Substance: CANNABIDIOL
     Indication: EPILEPSY
     Dosage: DOSE INCREASED
     Route: 048
     Dates: start: 2020
  3. EPIDIOLEX [Suspect]
     Active Substance: CANNABIDIOL
     Indication: FOCAL DYSCOGNITIVE SEIZURES

REACTIONS (5)
  - Seizure [Unknown]
  - Product use in unapproved indication [Not Recovered/Not Resolved]
  - Product taste abnormal [Unknown]
  - Weight increased [Unknown]
  - Tongue discomfort [Unknown]

NARRATIVE: CASE EVENT DATE: 2020
